FAERS Safety Report 15077026 (Version 3)
Quarter: 2018Q4

REPORT INFORMATION
  Report Type: Report from Study
  Country: None (occurrence: US)
  Receive Date: 20180627
  Receipt Date: 20181025
  Transmission Date: 20190204
  Serious: Yes (Other)
  Sender: FDA-Public Use
  Company Number: US-ABBVIE-18K-163-2285070-00

PATIENT
  Age: 53 Year
  Sex: Female

DRUGS (4)
  1. HUMIRA [Suspect]
     Active Substance: ADALIMUMAB
     Route: 058
  2. HUMIRA [Suspect]
     Active Substance: ADALIMUMAB
     Route: 058
  3. METHOTREXATE. [Concomitant]
     Active Substance: METHOTREXATE
     Indication: PRODUCT USED FOR UNKNOWN INDICATION
     Dosage: WEANED OFF
  4. HUMIRA [Suspect]
     Active Substance: ADALIMUMAB
     Indication: RHEUMATOID ARTHRITIS
     Route: 058

REACTIONS (17)
  - Poor peripheral circulation [Unknown]
  - Vertigo [Unknown]
  - Formication [Recovering/Resolving]
  - Balance disorder [Unknown]
  - Neuropathy peripheral [Not Recovered/Not Resolved]
  - Sensitivity to weather change [Unknown]
  - Joint swelling [Unknown]
  - Blood glucose abnormal [Unknown]
  - Fall [Recovered/Resolved]
  - Fall [Unknown]
  - Food allergy [Recovering/Resolving]
  - Fatigue [Recovering/Resolving]
  - Dizziness [Recovering/Resolving]
  - Endocrine pancreatic disorder [Unknown]
  - Peripheral arterial occlusive disease [Unknown]
  - Peripheral coldness [Unknown]
  - Fall [Recovered/Resolved]

NARRATIVE: CASE EVENT DATE: 2017
